FAERS Safety Report 17558715 (Version 1)
Quarter: 2020Q1

REPORT INFORMATION
  Report Type: Report from Study
  Country: NL (occurrence: NL)
  Receive Date: 20200318
  Receipt Date: 20200318
  Transmission Date: 20200409
  Serious: Yes (Other)
  Sender: FDA-Public Use
  Company Number: NL-INCYTE CORPORATION-2019IN000162

PATIENT

DRUGS (16)
  1. PROPOFOL. [Concomitant]
     Active Substance: PROPOFOL
     Indication: ENDOSCOPIC RETROGRADE CHOLANGIOPANCREATOGRAPHY
     Dosage: 2 OT, UNK
     Route: 065
     Dates: start: 20190614, end: 20190614
  2. VALACICLOVIR [Concomitant]
     Active Substance: VALACYCLOVIR HYDROCHLORIDE
     Indication: PROPHYLAXIS
     Dosage: 1000 OT
     Route: 065
     Dates: start: 20190529, end: 20190604
  3. JAKAVI [Suspect]
     Active Substance: RUXOLITINIB
     Indication: POLYCYTHAEMIA VERA
     Dosage: 10 OT, UNK
     Route: 048
     Dates: start: 20180226, end: 20180312
  4. CARBAMAZEPINE. [Concomitant]
     Active Substance: CARBAMAZEPINE
     Indication: POLYNEUROPATHY
     Dosage: 200 OT, UNK
     Route: 065
     Dates: start: 20110214
  5. NADROPARINE [Concomitant]
     Active Substance: NADROPARIN
     Indication: CHOLECYSTECTOMY
     Dosage: 5700 UNK, OT
     Route: 065
     Dates: start: 20190921
  6. METOPROLOL. [Concomitant]
     Active Substance: METOPROLOL
     Indication: HYPERTENSION
     Dosage: 100 OT, UNK
     Route: 065
     Dates: start: 20011211
  7. ASCAL [ACETYLSALICYLATE CALCIUM] [Concomitant]
     Indication: ERYTHROMELALGIA
     Dosage: 80 OT, UNK
     Route: 065
     Dates: start: 19890615
  8. TERAZOSINE [TERAZOSIN] [Concomitant]
     Indication: HYPERTENSION
     Dosage: 5 OT, UNK
     Route: 065
     Dates: start: 20150319
  9. ATORVASTATINE [ATORVASTATIN] [Concomitant]
     Active Substance: ATORVASTATIN
     Indication: PROPHYLAXIS
     Dosage: 40 OT, UNK
     Route: 065
     Dates: start: 20121119
  10. ESOMEPRAZOLE. [Concomitant]
     Active Substance: ESOMEPRAZOLE MAGNESIUM
     Indication: PROPHYLAXIS
     Dosage: 40 OT, UNK
     Route: 065
     Dates: start: 20121119
  11. JAKAVI [Suspect]
     Active Substance: RUXOLITINIB
     Dosage: 15 OT, UNK
     Route: 048
     Dates: start: 20180313, end: 20180528
  12. JAKAVI [Suspect]
     Active Substance: RUXOLITINIB
     Dosage: 20 OT, UNK
     Route: 048
     Dates: start: 20180529
  13. PARACETAMOL [Concomitant]
     Active Substance: ACETAMINOPHEN
     Indication: PRODUCT USED FOR UNKNOWN INDICATION
     Dosage: 1000 OT, UNK
     Route: 065
     Dates: start: 20190702
  14. STEROFUNDIN [Concomitant]
     Active Substance: CALCIUM CHLORIDE\MAGNESIUM CHLORIDE\POTASSIUM CHLORIDE\SODIUM ACETATE\SODIUM CHLORIDE
     Indication: CHOLECYSTECTOMY
     Dosage: UNK
     Route: 065
     Dates: start: 20190920, end: 20190921
  15. VALACICLOVIR [Concomitant]
     Active Substance: VALACYCLOVIR HYDROCHLORIDE
     Indication: HERPES ZOSTER
     Dosage: 500 OT, UNK
     Route: 065
     Dates: start: 20190605
  16. PEGASYS [Concomitant]
     Active Substance: PEGINTERFERON ALFA-2A
     Indication: POLYCYTHAEMIA VERA
     Dosage: 90 OT
     Route: 065
     Dates: start: 20060301

REACTIONS (25)
  - Hypertension [Recovered/Resolved]
  - Sleep apnoea syndrome [Recovered/Resolved]
  - Oropharyngeal pain [Recovered/Resolved]
  - Abdominal pain [Unknown]
  - Diarrhoea [Recovered/Resolved]
  - Gingival pain [Recovered/Resolved]
  - Respiratory tract infection [Recovered/Resolved]
  - Blood bilirubin increased [Unknown]
  - Sepsis [Recovered/Resolved]
  - Weight increased [Not Recovered/Not Resolved]
  - Bradycardia [Recovered/Resolved]
  - Respiratory tract infection [Recovered/Resolved]
  - Urinary tract infection [Recovered/Resolved]
  - Dyspnoea [Not Recovered/Not Resolved]
  - Drug ineffective [Recovered/Resolved]
  - Arthralgia [Not Recovered/Not Resolved]
  - Pharyngitis [Recovered/Resolved]
  - Diabetes mellitus [Not Recovered/Not Resolved]
  - Transaminases increased [Unknown]
  - Pyrexia [Unknown]
  - Herpes zoster [Recovered/Resolved]
  - Cholangitis [Recovered/Resolved]
  - Cholelithiasis [Recovered/Resolved]
  - Nasopharyngitis [Recovered/Resolved]
  - Hypertension [Not Recovered/Not Resolved]

NARRATIVE: CASE EVENT DATE: 20180312
